FAERS Safety Report 20758790 (Version 1)
Quarter: 2022Q2

REPORT INFORMATION
  Report Type: Report from Study
  Country: US (occurrence: US)
  Receive Date: 20220427
  Receipt Date: 20220427
  Transmission Date: 20220721
  Serious: Yes (Other)
  Sender: FDA-Public Use
  Company Number: US-KYOWAKIRIN-2022BKK005803

PATIENT

DRUGS (1)
  1. CRYSVITA [Suspect]
     Active Substance: BUROSUMAB-TWZA
     Indication: Hereditary hypophosphataemic rickets
     Dosage: 80 MG, EVERY 28 DAYS
     Route: 065
     Dates: start: 20210408

REACTIONS (5)
  - Coeliac disease [Unknown]
  - Gastric disorder [Unknown]
  - Condition aggravated [Unknown]
  - Gluten sensitivity [Unknown]
  - Food allergy [Unknown]

NARRATIVE: CASE EVENT DATE: 20220101
